FAERS Safety Report 5340199-6 (Version None)
Quarter: 2007Q2

REPORT INFORMATION
  Report Type: 
  Country: None (occurrence: None)
  Receive Date: 20070531
  Receipt Date: 20070524
  Transmission Date: 20071010
  Serious: Yes (Other)
  Sender: FDA-Public Use
  Company Number: B0473217A

PATIENT
  Sex: Male

DRUGS (7)
  1. AVANDIA [Suspect]
     Dosage: 4MG AT NIGHT
  2. VENTOLIN [Suspect]
     Indication: DRUG USE FOR UNKNOWN INDICATION
     Route: 065
  3. DIAFORMIN [Concomitant]
     Route: 065
  4. CAPOTEN [Concomitant]
     Route: 065
  5. DIAMICRON [Concomitant]
     Route: 065
  6. ANTIBIOTICS [Concomitant]
     Route: 065
  7. SYMBICORT [Concomitant]
     Route: 065

REACTIONS (1)
  - PALPITATIONS [None]
